FAERS Safety Report 14419200 (Version 1)
Quarter: 2018Q1

REPORT INFORMATION
  Report Type: Spontaneous
  Country: US (occurrence: US)
  Receive Date: 20180119
  Receipt Date: 20180119
  Transmission Date: 20180509
  Serious: Yes (Hospitalization)
  Sender: FDA-Public Use
  Company Number: None

PATIENT
  Age: 36 Year
  Sex: Male
  Weight: 72.3 kg

DRUGS (4)
  1. IFOSFAMIDE. [Suspect]
     Active Substance: IFOSFAMIDE
     Dosage: C1 START 10/20,  END 10/20?C2 START 11/3, END 11/5
     Dates: start: 20171020, end: 20171022
  2. CARBOPLATIN. [Suspect]
     Active Substance: CARBOPLATIN
     Dosage: C3 START 11/17, END 11/19?C4 START 12/8, END 12/10
     Dates: start: 20171117, end: 20171119
  3. TAXOL [Suspect]
     Active Substance: PACLITAXEL
     Dosage: C1 START 10/20,  END 10/20?C2 START 11/3, END 11/3
     Dates: start: 20171020, end: 20171020
  4. ETOPOSIDE (VP-16) [Suspect]
     Active Substance: ETOPOSIDE
     Dosage: C3 START 11/17, END 11/19?C4 START 12/8, END 12/10
     Dates: start: 20171117, end: 20171119

REACTIONS (6)
  - Dehydration [None]
  - Abdominal pain [None]
  - Vomiting [None]
  - Nausea [None]
  - Diarrhoea [None]
  - Febrile neutropenia [None]

NARRATIVE: CASE EVENT DATE: 20171216
